FAERS Safety Report 4470172-1 (Version None)
Quarter: 2004Q3

REPORT INFORMATION
  Report Type: 
  Country: None (occurrence: None)
  Receive Date: 20040910
  Receipt Date: 20040802
  Transmission Date: 20050211
  Serious: No
  Sender: FDA-Public Use
  Company Number: 2004227158US

PATIENT
  Sex: Male
  Weight: 92.5 kg

DRUGS (11)
  1. BEXTRA [Suspect]
     Indication: OSTEOARTHRITIS
     Dosage: SEE IMAGE
  2. BIAXIN [Suspect]
     Dates: start: 20040401
  3. NEXIUM [Concomitant]
  4. FEOSOL [Concomitant]
  5. AMBIEN [Concomitant]
  6. TYLENOL [Concomitant]
  7. ALLERGY SHOTS [Concomitant]
  8. ALLEGRA [Concomitant]
  9. PERDIUM [Concomitant]
  10. ROFECOXIB [Concomitant]
  11. MOBIC [Concomitant]

REACTIONS (3)
  - DRUG INEFFECTIVE [None]
  - GLOSSITIS [None]
  - TONGUE DESQUAMATION [None]
